FAERS Safety Report 24221007 (Version 1)
Quarter: 2024Q3

REPORT INFORMATION
  Report Type: Spontaneous
  Country: US (occurrence: US)
  Receive Date: 20240819
  Receipt Date: 20240819
  Transmission Date: 20241017
  Serious: No
  Sender: ENDO
  Company Number: ENDB23-03727

PATIENT
  Sex: Female

DRUGS (5)
  1. QWO [Suspect]
     Active Substance: COLLAGENASE CLOSTRIDIUM HISTOLYTICUM-AAES
     Indication: Cellulite
     Dosage: UNK UNKNOWN, UNKNOWN (SESSION ONE0
     Route: 051
     Dates: start: 2021
  2. QWO [Suspect]
     Active Substance: COLLAGENASE CLOSTRIDIUM HISTOLYTICUM-AAES
     Dosage: UNK UNKNOWN, UNKNOWN (SESSION TWO)
     Route: 051
     Dates: start: 2021
  3. QWO [Suspect]
     Active Substance: COLLAGENASE CLOSTRIDIUM HISTOLYTICUM-AAES
     Dosage: UNK UNKNOWN, UNKNOWN (SESSION THREE)
     Route: 051
     Dates: start: 2021
  4. QWO [Suspect]
     Active Substance: COLLAGENASE CLOSTRIDIUM HISTOLYTICUM-AAES
     Dosage: UNK UNKNOWN, UNKNOWN (SESSION FOUR)
     Route: 051
     Dates: start: 202107
  5. QWO [Suspect]
     Active Substance: COLLAGENASE CLOSTRIDIUM HISTOLYTICUM-AAES
     Dosage: UNK UNKNOWN, UNKNOWN (SESSION FIVE)
     Route: 051
     Dates: start: 202108

REACTIONS (4)
  - Contusion [Recovered/Resolved]
  - Nodule [Not Recovered/Not Resolved]
  - Drug ineffective [Unknown]
  - Expired product administered [Unknown]

NARRATIVE: CASE EVENT DATE: 20210101
